FAERS Safety Report 9006876 (Version 1)
Quarter: 2013Q1

REPORT INFORMATION
  Report Type: Spontaneous
  Country: GB (occurrence: GB)
  Receive Date: 20130110
  Receipt Date: 20130110
  Transmission Date: 20140127
  Serious: Yes (Other)
  Sender: FDA-Public Use
  Company Number: GB-PFIZER INC-2013008981

PATIENT
  Age: 69 Year
  Sex: Female

DRUGS (1)
  1. ATENOLOL [Suspect]
     Dosage: 50 MG, 1X/DAY
     Route: 048
     Dates: start: 201207

REACTIONS (5)
  - Chest discomfort [Unknown]
  - Inflammation [Unknown]
  - Epistaxis [Unknown]
  - Trigger finger [Unknown]
  - Dyspepsia [Unknown]
